FAERS Safety Report 5477061-4 (Version None)
Quarter: 2007Q3

REPORT INFORMATION
  Report Type: 
  Country: None (occurrence: None)
  Receive Date: 20070831
  Receipt Date: 20070731
  Transmission Date: 20080115
  Serious: No
  Sender: FDA-Public Use
  Company Number: US-JNJFOC-20070703671

PATIENT
  Sex: Male

DRUGS (2)
  1. DACOGEN [Suspect]
     Indication: MYELODYSPLASTIC SYNDROME
     Dosage: ADMINISTERED OVER 1 HOUR
     Dates: start: 20070409, end: 20070410
  2. DACOGEN [Suspect]
     Indication: MYELODYSPLASTIC SYNDROME
     Dosage: ADMINISTERED OVER 1 HOUR
     Dates: start: 20070604, end: 20070608

REACTIONS (2)
  - COUGH [None]
  - FATIGUE [None]
